FAERS Safety Report 25362801 (Version 1)
Quarter: 2025Q2

REPORT INFORMATION
  Report Type: Spontaneous
  Country: CN (occurrence: CN)
  Receive Date: 20250527
  Receipt Date: 20250527
  Transmission Date: 20250716
  Serious: Yes (Other)
  Sender: STRIDES
  Company Number: CN-STRIDES ARCOLAB LIMITED-2025SP006408

PATIENT
  Age: 69 Year
  Sex: Male

DRUGS (18)
  1. PREDNISOLONE [Suspect]
     Active Substance: PREDNISOLONE
     Indication: Hormone-refractory prostate cancer
     Route: 065
  2. PREDNISOLONE [Suspect]
     Active Substance: PREDNISOLONE
     Indication: Prostate cancer metastatic
  3. PREDNISOLONE [Suspect]
     Active Substance: PREDNISOLONE
     Indication: Neuroendocrine carcinoma of prostate
  4. ETOPOSIDE [Suspect]
     Active Substance: ETOPOSIDE
     Indication: Hormone-refractory prostate cancer
     Route: 065
  5. ETOPOSIDE [Suspect]
     Active Substance: ETOPOSIDE
     Indication: Prostate cancer metastatic
  6. ETOPOSIDE [Suspect]
     Active Substance: ETOPOSIDE
     Indication: Neuroendocrine carcinoma of prostate
  7. ABIRATERONE [Suspect]
     Active Substance: ABIRATERONE
     Indication: Hormone-refractory prostate cancer
     Route: 065
  8. ABIRATERONE [Suspect]
     Active Substance: ABIRATERONE
     Indication: Prostate cancer metastatic
  9. ABIRATERONE [Suspect]
     Active Substance: ABIRATERONE
     Indication: Neuroendocrine carcinoma of prostate
  10. TRIPTORELIN [Suspect]
     Active Substance: TRIPTORELIN
     Indication: Hormone-refractory prostate cancer
     Route: 065
  11. TRIPTORELIN [Suspect]
     Active Substance: TRIPTORELIN
     Indication: Neuroendocrine carcinoma of prostate
  12. TRIPTORELIN [Suspect]
     Active Substance: TRIPTORELIN
     Indication: Prostate cancer metastatic
  13. DOCETAXEL [Suspect]
     Active Substance: DOCETAXEL
     Indication: Hormone-refractory prostate cancer
     Route: 065
  14. DOCETAXEL [Suspect]
     Active Substance: DOCETAXEL
     Indication: Neuroendocrine carcinoma of prostate
  15. DOCETAXEL [Suspect]
     Active Substance: DOCETAXEL
     Indication: Prostate cancer metastatic
  16. CISPLATIN [Suspect]
     Active Substance: CISPLATIN
     Indication: Hormone-refractory prostate cancer
     Route: 065
  17. CISPLATIN [Suspect]
     Active Substance: CISPLATIN
     Indication: Neuroendocrine carcinoma of prostate
  18. CISPLATIN [Suspect]
     Active Substance: CISPLATIN
     Indication: Prostate cancer metastatic

REACTIONS (3)
  - Neoplasm progression [Recovering/Resolving]
  - Drug resistance [Unknown]
  - Off label use [Unknown]
